FAERS Safety Report 9442831 (Version 1)
Quarter: 2013Q3

REPORT INFORMATION
  Report Type: Spontaneous
  Country: FI (occurrence: FI)
  Receive Date: 20130806
  Receipt Date: 20130806
  Transmission Date: 20140515
  Serious: Yes (Hospitalization, Other)
  Sender: FDA-Public Use
  Company Number: FI-UCBSA-093531

PATIENT
  Age: 45 Year
  Sex: Male

DRUGS (6)
  1. CIMZIA [Suspect]
     Indication: RHEUMATOID ARTHRITIS
     Route: 058
     Dates: start: 20121017
  2. TREXAN [Concomitant]
     Indication: RHEUMATOID ARTHRITIS
     Dosage: DOSE PER INTAKE-20
     Route: 048
     Dates: end: 20130419
  3. OXIKLORIN [Concomitant]
     Indication: RHEUMATOID ARTHRITIS
     Route: 048
  4. SALOZOPYRIN EN 500 [Concomitant]
     Indication: RHEUMATOID ARTHRITIS
     Route: 048
  5. ARCOXIA [Concomitant]
  6. KALCIPOS D [Concomitant]

REACTIONS (1)
  - Herpes zoster [Not Recovered/Not Resolved]
